FAERS Safety Report 9215225 (Version 1)
Quarter: 2013Q2

REPORT INFORMATION
  Report Type: Spontaneous
  Country: FR (occurrence: FR)
  Receive Date: 20130405
  Receipt Date: 20130405
  Transmission Date: 20140414
  Serious: Yes (Hospitalization)
  Sender: FDA-Public Use
  Company Number: FR-B.I. PHARMACEUTICALS,INC./RIDGEFIELD-2013-BI-09471BY

PATIENT
  Age: 79 Year
  Sex: Female

DRUGS (9)
  1. PRITOR [Suspect]
     Dosage: 80 MG
     Route: 048
     Dates: start: 201201
  2. PRAVASTATIN SODIUM [Suspect]
     Dosage: 20 MG
     Route: 048
     Dates: start: 1999
  3. CORDARONE [Suspect]
     Dosage: 200 MG
     Route: 048
     Dates: start: 20121215, end: 20130228
  4. FUROSEMIDE [Concomitant]
  5. KARDEGIC [Concomitant]
  6. DISCOTRINE [Concomitant]
  7. MODOPAR [Concomitant]
  8. OMEPRAZOLE [Concomitant]
  9. IXPRIM [Concomitant]

REACTIONS (3)
  - Interstitial lung disease [Not Recovered/Not Resolved]
  - Dyspnoea [Not Recovered/Not Resolved]
  - Pulmonary fibrosis [Not Recovered/Not Resolved]
